FAERS Safety Report 20473762 (Version 1)
Quarter: 2022Q1

REPORT INFORMATION
  Report Type: Spontaneous
  Country: US (occurrence: None)
  Receive Date: 20220214
  Receipt Date: 20220214
  Transmission Date: 20220424
  Serious: No
  Sender: FDA-Public Use
  Company Number: None

PATIENT
  Age: 57 Year
  Sex: Male

DRUGS (2)
  1. NIRMATRELVIR\RITONAVIR [Suspect]
     Active Substance: NIRMATRELVIR\RITONAVIR
     Indication: COVID-19
     Dosage: 300/100 MG BID PO? ?
     Route: 048
     Dates: start: 20220116, end: 20220121
  2. BUPROPION [Suspect]
     Active Substance: BUPROPION
     Indication: Depression

REACTIONS (2)
  - Suicidal ideation [None]
  - Antidepressant drug level decreased [None]

NARRATIVE: CASE EVENT DATE: 20220124
